FAERS Safety Report 8433633-6 (Version None)
Quarter: 2012Q2

REPORT INFORMATION
  Report Type: 
  Country: None (occurrence: None)
  Receive Date: 20120613
  Receipt Date: 20120604
  Transmission Date: 20120825
  Serious: Yes (Other)
  Sender: FDA-Public Use
  Company Number: US-ABBOTT-12P-163-0942372-00

PATIENT
  Age: 51 Year
  Sex: Female

DRUGS (8)
  1. OXYCONTIN [Concomitant]
     Indication: PRODUCT USED FOR UNKNOWN INDICATION
     Dosage: ONE TO THREE TIMES DAILY
     Route: 048
  2. UNKNOWN MEDICATION [Concomitant]
     Indication: HORMONE REPLACEMENT THERAPY
  3. OMEPRAZOLE [Concomitant]
     Indication: GASTROOESOPHAGEAL REFLUX DISEASE
     Dosage: 40 MG DAILY
     Route: 048
  4. KLONOPIN [Concomitant]
     Indication: ANXIETY
     Route: 048
  5. AMBIEN [Concomitant]
     Indication: INSOMNIA
  6. HUMIRA [Suspect]
     Indication: RHEUMATOID ARTHRITIS
     Dates: start: 20080101
  7. SIMVASTATIN [Concomitant]
     Indication: PRODUCT USED FOR UNKNOWN INDICATION
     Route: 048
  8. AMLODIPINE [Concomitant]
     Indication: PRODUCT USED FOR UNKNOWN INDICATION

REACTIONS (8)
  - DYSPNOEA [None]
  - INFECTION [None]
  - INFLAMMATION [None]
  - ANAEMIA [None]
  - FATIGUE [None]
  - SJOGREN'S SYNDROME [None]
  - PALPITATIONS [None]
  - LYMPHADENOPATHY [None]
